FAERS Safety Report 18232379 (Version 1)
Quarter: 2020Q3

REPORT INFORMATION
  Report Type: Spontaneous
  Country: FR (occurrence: FR)
  Receive Date: 20200904
  Receipt Date: 20200904
  Transmission Date: 20201103
  Serious: Yes (Hospitalization)
  Sender: FDA-Public Use
  Company Number: FR-TEVA-2020-FR-1822402

PATIENT
  Age: 52 Year
  Sex: Female
  Weight: 67 kg

DRUGS (10)
  1. MAG 2 [Concomitant]
     Active Substance: MAGNESIUM
     Route: 048
  2. POLARAMINE [Concomitant]
     Active Substance: DEXCHLORPHENIRAMINE MALEATE
     Route: 042
     Dates: start: 20200629, end: 20200629
  3. SOLUPRED [Concomitant]
     Route: 048
  4. PACLITAXEL. [Suspect]
     Active Substance: PACLITAXEL
     Indication: BREAST CANCER METASTATIC
     Dosage: 144 MG
     Route: 042
     Dates: start: 20200629, end: 20200629
  5. ORBENINE 1 G, POUDRE POUR SOLUTION INJECTABLE (IV) [Suspect]
     Active Substance: CLOXACILLIN SODIUM
     Indication: STAPHYLOCOCCAL SEPSIS
     Dosage: 8 GM
     Route: 042
     Dates: start: 20200612, end: 20200705
  6. MOVENTIG [Concomitant]
     Active Substance: NALOXEGOL OXALATE
     Route: 048
  7. OXYCODONE [Concomitant]
     Active Substance: OXYCODONE
     Route: 042
  8. PREGABALINE [Concomitant]
     Active Substance: PREGABALIN
     Route: 048
  9. PHOSPHONEUROS [Concomitant]
     Active Substance: CALCIUM PHOSPHATE, DIBASIC, ANHYDROUS\MAGNESIUM GLYCEROPHOSPHATE\PHOSPHORIC ACID\SODIUM PHOSPHATE, DIBASIC
     Route: 048
  10. ONDANSETRON [Concomitant]
     Active Substance: ONDANSETRON
     Route: 042
     Dates: start: 20200629, end: 20200629

REACTIONS (2)
  - Burning sensation [Recovered/Resolved]
  - Rash erythematous [Recovered/Resolved]

NARRATIVE: CASE EVENT DATE: 20200701
